FAERS Safety Report 12967512 (Version 2)
Quarter: 2016Q4

REPORT INFORMATION
  Report Type: Report from Study
  Country: DE (occurrence: DE)
  Receive Date: 20161123
  Receipt Date: 20161205
  Transmission Date: 20170207
  Serious: Yes (Other)
  Sender: FDA-Public Use
  Company Number: DE-ROCHE-1856293

PATIENT
  Age: 73 Year
  Sex: Male
  Weight: 93 kg

DRUGS (2)
  1. ESBRIET [Suspect]
     Active Substance: PIRFENIDONE
     Route: 048
  2. ESBRIET [Suspect]
     Active Substance: PIRFENIDONE
     Indication: IDIOPATHIC PULMONARY FIBROSIS
     Route: 048
     Dates: start: 20160918

REACTIONS (7)
  - Fatigue [Recovered/Resolved]
  - Orchitis noninfective [Recovering/Resolving]
  - Inflammation [Recovering/Resolving]
  - Arthritis infective [Not Recovered/Not Resolved]
  - External ear inflammation [Recovering/Resolving]
  - Nasal inflammation [Recovering/Resolving]
  - Skin reaction [Not Recovered/Not Resolved]

NARRATIVE: CASE EVENT DATE: 201610
